FAERS Safety Report 16927829 (Version 2)
Quarter: 2019Q4

REPORT INFORMATION
  Report Type: Spontaneous
  Country: ES (occurrence: ES)
  Receive Date: 20191017
  Receipt Date: 20191225
  Transmission Date: 20200122
  Serious: Yes (Hospitalization, Other)
  Sender: FDA-Public Use
  Company Number: ES-AUROBINDO-AUR-APL-2019-067180

PATIENT
  Age: 20 Year
  Sex: Male

DRUGS (2)
  1. DEXKETOPROFEN [Suspect]
     Active Substance: DEXKETOPROFEN
     Indication: ALCOHOLIC HANGOVER
     Dosage: UNK
     Route: 048
     Dates: start: 20190501, end: 20190529
  2. IBUPROFEN. [Suspect]
     Active Substance: IBUPROFEN
     Indication: ALCOHOLIC HANGOVER
     Dosage: UNK
     Route: 048
     Dates: start: 20190501, end: 20190529

REACTIONS (2)
  - Tubulointerstitial nephritis [Recovering/Resolving]
  - Acute kidney injury [Recovering/Resolving]

NARRATIVE: CASE EVENT DATE: 20190529
